FAERS Safety Report 15053952 (Version 1)
Quarter: 2018Q2

REPORT INFORMATION
  Report Type: Spontaneous
  Country: US (occurrence: US)
  Receive Date: 20180622
  Receipt Date: 20180622
  Transmission Date: 20180711
  Serious: Yes (Hospitalization)
  Sender: FDA-Public Use
  Company Number: US-FRESENIUS MEDICAL CARE RENAL THERAPIES GROUP-FMC-1806-001137

PATIENT
  Age: 54 Year
  Sex: Male
  Weight: 97.1 kg

DRUGS (12)
  1. DELFLEX [Suspect]
     Active Substance: CALCIUM CHLORIDE\DEXTROSE\MAGNESIUM CHLORIDE\SODIUM CHLORIDE\SODIUM LACTATE
     Indication: END STAGE RENAL DISEASE
     Route: 033
  2. ZOFRAN [Concomitant]
     Active Substance: ONDANSETRON HYDROCHLORIDE
  3. SENNA [Concomitant]
     Active Substance: SENNA LEAF\SENNOSIDES\SENNOSIDES A AND B
  4. SIMVASTATIN. [Concomitant]
     Active Substance: SIMVASTATIN
  5. METOPROLOL. [Concomitant]
     Active Substance: METOPROLOL
  6. LOSARTAN. [Concomitant]
     Active Substance: LOSARTAN
  7. DOCUSATE SODIUM. [Concomitant]
     Active Substance: DOCUSATE SODIUM
  8. INSULIN [Concomitant]
     Active Substance: INSULIN NOS
  9. WARFARIN [Concomitant]
     Active Substance: WARFARIN
  10. FUROSEMIDE. [Concomitant]
     Active Substance: FUROSEMIDE
  11. GENTAMICIN SULFATE. [Concomitant]
     Active Substance: GENTAMICIN SULFATE
  12. SEVELAMER [Concomitant]
     Active Substance: SEVELAMER

REACTIONS (3)
  - Peritonitis bacterial [Unknown]
  - Sepsis [Unknown]
  - Liver abscess [Unknown]

NARRATIVE: CASE EVENT DATE: 20180605
